FAERS Safety Report 13065407 (Version 3)
Quarter: 2017Q2

REPORT INFORMATION
  Report Type: Spontaneous
  Country: US (occurrence: US)
  Receive Date: 20161227
  Receipt Date: 20170407
  Transmission Date: 20170830
  Serious: Yes (Hospitalization, Other)
  Sender: FDA-Public Use
  Company Number: US-PFIZER INC-2016585682

PATIENT
  Age: 46 Year
  Sex: Female
  Weight: 63.5 kg

DRUGS (19)
  1. LYRICA [Suspect]
     Active Substance: PREGABALIN
     Indication: MIGRAINE
     Dosage: 75 MG, 3X/DAY
     Route: 048
     Dates: start: 2003
  2. LYRICA [Suspect]
     Active Substance: PREGABALIN
     Dosage: 75 MG, 3X/DAY
     Route: 048
     Dates: start: 2003, end: 20161026
  3. LYRICA [Suspect]
     Active Substance: PREGABALIN
     Dosage: 175 MG, DAILY (75 MG, 50 MG AND 50 MG)
     Route: 048
  4. LYRICA [Suspect]
     Active Substance: PREGABALIN
     Dosage: 50 MG, 3X/DAY
     Route: 048
  5. LYRICA [Suspect]
     Active Substance: PREGABALIN
     Dosage: 25 MG, 3X/DAY
     Route: 048
  6. LYRICA [Suspect]
     Active Substance: PREGABALIN
     Dosage: 150 MG, 3X/DAY
     Route: 048
  7. LYRICA [Suspect]
     Active Substance: PREGABALIN
     Dosage: 275 MG, DAILY (100 MG, 100 MG AND 75 MG)
     Route: 048
  8. LYRICA [Suspect]
     Active Substance: PREGABALIN
     Dosage: 200 MG, DAILY (75 MG, 75 MG AND 50 MG)
     Route: 048
  9. LYRICA [Suspect]
     Active Substance: PREGABALIN
     Dosage: 25 MG, 2X/DAY
     Route: 048
  10. LYRICA [Suspect]
     Active Substance: PREGABALIN
     Dosage: 25 MG, ALTERNATE DAY ALTERNATE DAY (SHE TAKE ONE TABLET EVERY OTHER DAY)
     Route: 048
     Dates: end: 20161026
  11. AMBIEN [Suspect]
     Active Substance: ZOLPIDEM TARTRATE
     Indication: INSOMNIA
     Dosage: EITHER 5 OR 10 MG BEFORE BEDTIME
     Route: 048
     Dates: start: 20161203, end: 20161207
  12. LYRICA [Suspect]
     Active Substance: PREGABALIN
     Dosage: 350 MG, DAILY (150 MG, 100 MG AND 100 MG)
     Route: 048
  13. ESTRADIOL. [Suspect]
     Active Substance: ESTRADIOL
     Indication: HORMONE LEVEL ABNORMAL
     Dosage: 2 MG, 1X/DAY
     Dates: start: 2001
  14. LYRICA [Suspect]
     Active Substance: PREGABALIN
     Dosage: 400 MG, DAILY (150 MG, 150MG, AND 100 MG)
     Route: 048
  15. LYRICA [Suspect]
     Active Substance: PREGABALIN
     Dosage: 25 MG, 1X/DAY (FOR THREE WEEK)
     Route: 048
  16. LYRICA [Suspect]
     Active Substance: PREGABALIN
     Dosage: 250 MG, DAILY (100 MG, 75 MG, 75 MG)
     Route: 048
  17. LYRICA [Suspect]
     Active Substance: PREGABALIN
     Dosage: 100 MG, 3X/DAY
     Route: 048
  18. LYRICA [Suspect]
     Active Substance: PREGABALIN
     Dosage: 125 MG, DAILY (50 MG, 50 MG AND 25 MG)
     Route: 048
  19. LYRICA [Suspect]
     Active Substance: PREGABALIN
     Dosage: 100 MG, DAILY (50 MG, 25 MG AND 25 MG)
     Route: 048

REACTIONS (30)
  - Osteomyelitis [Recovered/Resolved]
  - Weight increased [Recovered/Resolved]
  - Sinusitis [Recovered/Resolved]
  - Vision blurred [Recovered/Resolved]
  - Condition aggravated [Unknown]
  - Dyspnoea [Recovered/Resolved]
  - Suicidal ideation [Recovered/Resolved]
  - Withdrawal syndrome [Unknown]
  - Pain in jaw [Recovered/Resolved]
  - Irritability [Recovered/Resolved]
  - Hyperhidrosis [Unknown]
  - Hot flush [Recovered/Resolved]
  - Anxiety [Not Recovered/Not Resolved]
  - Weight decreased [Unknown]
  - Speech disorder [Recovered/Resolved]
  - Movement disorder [Unknown]
  - Crying [Not Recovered/Not Resolved]
  - Depression [Recovered/Resolved]
  - Restlessness [Unknown]
  - Product use in unapproved indication [Recovered/Resolved]
  - Insomnia [Recovered/Resolved]
  - Paraesthesia [Unknown]
  - Skin burning sensation [Unknown]
  - Pruritus [Unknown]
  - Mood swings [Recovered/Resolved]
  - Nightmare [Recovered/Resolved]
  - Screaming [Unknown]
  - Mental disorder [Recovered/Resolved]
  - Pain [Recovered/Resolved]
  - Hallucination [Recovered/Resolved]

NARRATIVE: CASE EVENT DATE: 2003
